FAERS Safety Report 8596264-3 (Version None)
Quarter: 2012Q3

REPORT INFORMATION
  Report Type: 
  Country: None (occurrence: None)
  Receive Date: 20120815
  Receipt Date: 20120801
  Transmission Date: 20120928
  Serious: Yes (Death)
  Sender: FDA-Public Use
  Company Number: US-ARROW-2012-13897

PATIENT
  Age: 49 Year
  Sex: Male

DRUGS (2)
  1. IBUPROFEN [Suspect]
     Indication: INTENTIONAL OVERDOSE
     Dosage: 120 G, SINGLE
     Route: 048
  2. DEPAKOTE [Suspect]
     Indication: INTENTIONAL OVERDOSE
     Dosage: UNK
     Route: 048

REACTIONS (12)
  - COMA [None]
  - HYPOTENSION [None]
  - ELECTROCARDIOGRAM QT PROLONGED [None]
  - METABOLIC ACIDOSIS [None]
  - HYPERKALAEMIA [None]
  - TACHYCARDIA [None]
  - RENAL FAILURE [None]
  - THROMBOCYTOPENIA [None]
  - HYPOTHERMIA [None]
  - INTENTIONAL OVERDOSE [None]
  - SINUS BRADYCARDIA [None]
  - CIRCULATORY COLLAPSE [None]
